FAERS Safety Report 14184417 (Version 1)
Quarter: 2017Q4

REPORT INFORMATION
  Report Type: Spontaneous
  Country: US (occurrence: US)
  Receive Date: 20171113
  Receipt Date: 20171113
  Transmission Date: 20180321
  Serious: No
  Sender: FDA-Public Use
  Company Number: US-AUSTARPHARMA, LLC-2033917

PATIENT
  Age: 70 Year
  Sex: Female
  Weight: 72.73 kg

DRUGS (1)
  1. ALENDRONATE SODIUM. [Suspect]
     Active Substance: ALENDRONATE SODIUM
     Indication: OSTEOPOROSIS
     Route: 048

REACTIONS (2)
  - Malaise [Recovered/Resolved]
  - Regurgitation [Recovered/Resolved]
